FAERS Safety Report 6673036-8 (Version None)
Quarter: 2010Q2

REPORT INFORMATION
  Report Type: 
  Country: None (occurrence: None)
  Receive Date: 20100408
  Receipt Date: 20100331
  Transmission Date: 20101027
  Serious: Yes (Other)
  Sender: FDA-Public Use
  Company Number: PHHY2010US19629

PATIENT
  Age: 51 Year
  Sex: Male

DRUGS (6)
  1. ENTACAPONE [Suspect]
     Dosage: 1000 MG/DAY
  2. LEVODOPA [Concomitant]
     Dosage: 500 MG/ DAY
  3. ROPINIROLE [Concomitant]
     Indication: DRUG EFFECT DECREASED
     Dosage: 02 MG/ DAY
     Dates: start: 20060401
  4. ROPINIROLE [Concomitant]
     Dosage: 03 MG/ DAY
  5. PAROXETINE HCL [Concomitant]
     Indication: DEPRESSION
     Dosage: UNK
     Dates: start: 20030101
  6. LORAZEPAM [Concomitant]
     Indication: ANXIETY
     Dosage: UNK
     Dates: start: 20030101

REACTIONS (3)
  - DERMATILLOMANIA [None]
  - EXCORIATION [None]
  - RASH ERYTHEMATOUS [None]
